FAERS Safety Report 7079065-7 (Version None)
Quarter: 2010Q4

REPORT INFORMATION
  Report Type: 
  Country: None (occurrence: None)
  Receive Date: 20101102
  Receipt Date: 20101027
  Transmission Date: 20110411
  Serious: Yes (Other)
  Sender: FDA-Public Use
  Company Number: US-BAYER-201022639BCC

PATIENT
  Age: 32 Year
  Sex: Female
  Weight: 68 kg

DRUGS (8)
  1. ASPIRIN [Suspect]
     Indication: ANTICOAGULANT THERAPY
     Dosage: TOTAL DAILY DOSE: 650 MG  UNIT DOSE: 325 MG
     Route: 048
     Dates: start: 19720101, end: 19800101
  2. ASPIRIN [Suspect]
     Dosage: TOTAL DAILY DOSE: 1300 MG  UNIT DOSE: 325 MG
     Route: 048
     Dates: start: 20020101
  3. PLAVIX [Concomitant]
  4. LOPRESSOR [Concomitant]
  5. NORVASC [Concomitant]
  6. SLOVENT [Concomitant]
  7. COMBIVENT [Concomitant]
  8. TAGAMET [Concomitant]

REACTIONS (7)
  - ABDOMINAL DISTENSION [None]
  - ABDOMINAL PAIN UPPER [None]
  - APHAGIA [None]
  - GASTRITIS EROSIVE [None]
  - HAEMATEMESIS [None]
  - NAUSEA [None]
  - WEIGHT DECREASED [None]
